FAERS Safety Report 9744355 (Version 1)
Quarter: 2013Q4

REPORT INFORMATION
  Report Type: Spontaneous
  Country: FR (occurrence: FR)
  Receive Date: 20131210
  Receipt Date: 20131210
  Transmission Date: 20140711
  Serious: Yes (Other)
  Sender: FDA-Public Use
  Company Number: FR-TAKEDA-2013TUS003051

PATIENT
  Sex: 0

DRUGS (4)
  1. ADENURIC [Suspect]
     Indication: GOUT
     Dosage: UNK
     Route: 048
     Dates: start: 2013
  2. VERAPAMIL [Concomitant]
     Indication: HYPERTENSION
     Dosage: UNK
     Route: 048
  3. COKENZEN [Concomitant]
     Indication: HYPERTENSION
     Dosage: UNK
     Route: 048
  4. COLCHIMAX                          /00728901/ [Concomitant]
     Indication: GOUT
     Dosage: UNK
     Route: 048

REACTIONS (3)
  - Vocal cord paralysis [Not Recovered/Not Resolved]
  - Dysphonia [Not Recovered/Not Resolved]
  - Dyspnoea [Not Recovered/Not Resolved]
